FAERS Safety Report 17958716 (Version 2)
Quarter: 2020Q3

REPORT INFORMATION
  Report Type: Report from Study
  Country: CA (occurrence: CA)
  Receive Date: 20200630
  Receipt Date: 20200828
  Transmission Date: 20201103
  Serious: Yes (Hospitalization)
  Sender: FDA-Public Use
  Company Number: CA-EMD SERONO-9170651

PATIENT
  Age: 18 Year
  Sex: Male

DRUGS (1)
  1. SAIZEN [Suspect]
     Active Substance: SOMATROPIN
     Indication: PRODUCT USED FOR UNKNOWN INDICATION
     Dosage: EASYPOD ELECTRONIC AUTOINJECTOR
     Route: 058
     Dates: start: 20200219

REACTIONS (1)
  - Vomiting [Recovering/Resolving]

NARRATIVE: CASE EVENT DATE: 2020
